FAERS Safety Report 4832940-3 (Version None)
Quarter: 2005Q4

REPORT INFORMATION
  Report Type: 
  Country: None (occurrence: None)
  Receive Date: 20051117
  Receipt Date: 20051026
  Transmission Date: 20060501
  Serious: Yes (Hospitalization)
  Sender: FDA-Public Use
  Company Number: US_000643866

PATIENT
  Sex: Female

DRUGS (2)
  1. ILETIN [Suspect]
  2. HUMULIN N [Suspect]
     Indication: DIABETES MELLITUS

REACTIONS (7)
  - ABORTION SPONTANEOUS [None]
  - DRUG EXPOSURE DURING PREGNANCY [None]
  - INJECTION SITE ERYTHEMA [None]
  - INJECTION SITE PAIN [None]
  - INJECTION SITE URTICARIA [None]
  - PREGNANCY [None]
  - REACTION TO PRESERVATIVES [None]
